FAERS Safety Report 6610926 (Version 1)
Quarter: 2020Q3

REPORT INFORMATION
  Report Type: Report from Study
  Country: US (occurrence: US)
  Receive Date: 20080410
  Receipt Date: 20080410
  Transmission Date: 20201105
  Serious: Yes (Hospitalization)
  Sender: FDA-Public Use
  Company Number: US-ROCHE-556642

PATIENT
  Age: 82 Year
  Sex: Male

DRUGS (4)
  1. IBANDRONIC ACID. [Suspect]
     Active Substance: IBANDRONIC ACID
     Indication: OSTEOPOROSIS
     Route: 065
  2. UNKNOWN HYPERTENSION DRUG [Concomitant]
     Indication: HYPERTENSION
     Dosage: DRUG REPORTED AS: BLOOD PRESSURE MEDICINE
  3. UNSPECIFIED INGREDIENT [Concomitant]
     Active Substance: UNSPECIFIED INGREDIENT
     Dosage: DRUG REPORTED AS : HEART MEDICINE
  4. LIPITOR [Concomitant]
     Active Substance: ATORVASTATIN CALCIUM

REACTIONS (1)
  - Atrial fibrillation [Unknown]
